FAERS Safety Report 23517892 (Version 1)
Quarter: 2024Q1

REPORT INFORMATION
  Report Type: Report from Study
  Country: CZ (occurrence: CZ)
  Receive Date: 20240213
  Receipt Date: 20240213
  Transmission Date: 20240410
  Serious: Yes (Other)
  Sender: FDA-Public Use
  Company Number: CZ-ABBVIE-5637695

PATIENT
  Age: 69 Year
  Sex: Female

DRUGS (1)
  1. RINVOQ [Suspect]
     Active Substance: UPADACITINIB
     Indication: Rheumatoid arthritis
     Route: 048
     Dates: start: 20230529, end: 20230820

REACTIONS (9)
  - Nodular melanoma [Recovered/Resolved]
  - Cough [Unknown]
  - Wound [Unknown]
  - Vomiting [Unknown]
  - Impaired healing [Unknown]
  - Upper respiratory tract infection [Unknown]
  - Urinary incontinence [Unknown]
  - Haemorrhage [Recovered/Resolved]
  - Asphyxia [Unknown]

NARRATIVE: CASE EVENT DATE: 20230721
